FAERS Safety Report 13092404 (Version 1)
Quarter: 2017Q1

REPORT INFORMATION
  Report Type: Spontaneous
  Country: US (occurrence: US)
  Receive Date: 20170106
  Receipt Date: 20170106
  Transmission Date: 20170428
  Serious: No
  Sender: FDA-Public Use
  Company Number: US-JNJFOC-20161115656

PATIENT
  Age: 74 Year
  Sex: Female
  Weight: 67.13 kg

DRUGS (1)
  1. TYLENOL EXTRA STRENGTH [Suspect]
     Active Substance: ACETAMINOPHEN
     Indication: MYALGIA
     Route: 065

REACTIONS (3)
  - Incorrect product storage [Unknown]
  - Product packaging issue [Unknown]
  - Product package associated injury [Recovering/Resolving]
